FAERS Safety Report 6223804-1 (Version None)
Quarter: 2009Q2

REPORT INFORMATION
  Report Type: 
  Country: None (occurrence: None)
  Receive Date: 20090611
  Receipt Date: 20090302
  Transmission Date: 20091009
  Serious: No
  Sender: FDA-Public Use
  Company Number: US-ABBOTT-09P-163-0557569-00

PATIENT
  Sex: Female
  Weight: 58.112 kg

DRUGS (2)
  1. HUMIRA [Suspect]
     Indication: ANKYLOSING SPONDYLITIS
     Route: 058
     Dates: start: 20090206
  2. HUMIRA [Suspect]

REACTIONS (8)
  - BREAST CALCIFICATIONS [None]
  - DIZZINESS [None]
  - DYSGEUSIA [None]
  - HEADACHE [None]
  - LETHARGY [None]
  - MAMMOGRAM ABNORMAL [None]
  - NAUSEA [None]
  - WEIGHT INCREASED [None]
